FAERS Safety Report 24202674 (Version 1)
Quarter: 2024Q3

REPORT INFORMATION
  Report Type: Spontaneous
  Country: ES (occurrence: ES)
  Receive Date: 20240813
  Receipt Date: 20240813
  Transmission Date: 20241017
  Serious: Yes (Other)
  Sender: NOVO NORDISK
  Company Number: ES-NOVOPROD-1264542

PATIENT
  Age: 39 Year
  Sex: Male

DRUGS (2)
  1. NOVORAPID [Suspect]
     Active Substance: INSULIN ASPART
     Indication: Product used for unknown indication
     Dosage: UNK
  2. NOVORAPID [Suspect]
     Active Substance: INSULIN ASPART
     Dosage: UNK

REACTIONS (3)
  - Diabetic ketoacidosis [Unknown]
  - Drug ineffective [Unknown]
  - Product quality issue [Unknown]

NARRATIVE: CASE EVENT DATE: 20240801
